FAERS Safety Report 9579282 (Version 1)
Quarter: 2013Q4

REPORT INFORMATION
  Report Type: Spontaneous
  Country: US (occurrence: US)
  Receive Date: 20131001
  Receipt Date: 20131001
  Transmission Date: 20140711
  Serious: No
  Sender: FDA-Public Use
  Company Number: US-AMGEN-USASP2013017128

PATIENT
  Age: 50 Year
  Sex: Female
  Weight: 79.37 kg

DRUGS (9)
  1. ENBREL [Suspect]
     Indication: PSORIATIC ARTHROPATHY
     Dosage: 50 MG, QWK
     Route: 058
     Dates: end: 20130301
  2. TOPAMAX [Concomitant]
     Dosage: 25 MG, UNK
  3. IMITREX                            /01044801/ [Concomitant]
     Dosage: 25 MG, UNK
  4. FIORICET [Concomitant]
     Dosage: UNK
  5. ASA [Concomitant]
     Dosage: 81 MG, UNK
  6. CLARITIN                           /00413701/ [Concomitant]
     Dosage: 10 MG, UNK
  7. VITAMIN D                          /00107901/ [Concomitant]
     Dosage: 1000 UNIT, UNK
  8. PROAIR HFA [Concomitant]
     Dosage: UNK
  9. IBUPROFEN [Concomitant]
     Dosage: 200 MG, UNK

REACTIONS (2)
  - Joint swelling [Unknown]
  - Arthralgia [Unknown]
